FAERS Safety Report 4689218-0 (Version None)
Quarter: 2005Q2

REPORT INFORMATION
  Report Type: 
  Country: None (occurrence: None)
  Receive Date: 20050608
  Receipt Date: 20050304
  Transmission Date: 20051028
  Serious: No
  Sender: FDA-Public Use
  Company Number: 2005-BP-03566BP

PATIENT
  Age: 87 Year
  Sex: Female

DRUGS (20)
  1. SPIRIVA [Suspect]
     Indication: CHRONIC OBSTRUCTIVE PULMONARY DISEASE
     Dosage: 18 MCG (18 MCG, QD), IH
     Route: 055
     Dates: start: 20040617
  2. LASIX [Concomitant]
  3. POTASSIUM CHLORIDE [Concomitant]
  4. DITROPAN XL [Concomitant]
  5. ZOLOFT [Concomitant]
  6. CELEBREX [Concomitant]
  7. HYDROCODONE W/ APAP (PROCET /USA/) [Concomitant]
  8. SEREVENT DISKUS (SALMETEROL XINAFOATE) [Concomitant]
  9. ENDOCET (OXYCOCET) [Concomitant]
  10. PREDNISONE [Concomitant]
  11. DOCUSATE SODIUM (DOCUSATE SODIUM) [Concomitant]
  12. ACTONEL [Concomitant]
  13. ALBUTEROL [Concomitant]
  14. ALPRAZOLAM [Concomitant]
  15. PROTONIX [Concomitant]
  16. REMERON [Concomitant]
  17. LACTULOSE [Concomitant]
  18. DETROL LA [Concomitant]
  19. ADVAIR DISKUS (SERETIDE MITE) [Concomitant]
  20. OXYGEN (OXYGEN) [Concomitant]

REACTIONS (1)
  - DRUG INEFFECTIVE [None]
